FAERS Safety Report 7200879-4 (Version None)
Quarter: 2010Q4

REPORT INFORMATION
  Report Type: 
  Country: None (occurrence: None)
  Receive Date: 20101228
  Receipt Date: 20101220
  Transmission Date: 20110411
  Serious: Yes (Other)
  Sender: FDA-Public Use
  Company Number: US-PFIZER INC-2010176162

PATIENT
  Sex: Female
  Weight: 52.154 kg

DRUGS (6)
  1. CELEBREX [Suspect]
     Indication: ARTHRITIS
     Dosage: 200 MG, 2X/DAY
     Route: 048
  2. PREMARIN [Concomitant]
     Dosage: UNK
  3. LASIX [Concomitant]
     Dosage: UNK
  4. LIPITOR [Concomitant]
     Dosage: UNK
  5. CALCIUM [Concomitant]
     Dosage: UNK
  6. FISH OIL [Concomitant]
     Dosage: UNK

REACTIONS (4)
  - ATRIAL FIBRILLATION [None]
  - BODY HEIGHT DECREASED [None]
  - PNEUMONIA [None]
  - SCOLIOSIS [None]
